FAERS Safety Report 4791486-1 (Version None)
Quarter: 2005Q4

REPORT INFORMATION
  Report Type: 
  Country: None (occurrence: None)
  Receive Date: 20051007
  Receipt Date: 20041018
  Transmission Date: 20060501
  Serious: No
  Sender: FDA-Public Use
  Company Number: US-BRISTOL-MYERS SQUIBB COMPANY-12735122

PATIENT
  Age: 80 Year
  Sex: Female
  Weight: 73 kg

DRUGS (4)
  1. AVAPRO [Suspect]
     Indication: HYPERTENSION
     Dosage: BEGAN 150 MG, DAILY 1.5 MONTHS AGO.
     Route: 048
  2. SYNTHROID [Concomitant]
     Dosage: TAKEN FOR SEVERAL YEARS
  3. ACIPHEX [Concomitant]
     Dosage: TAKEN FOR SEVERAL YEARS
  4. LANOXIN [Concomitant]
     Dosage: BEGAN ^RECENTLY^

REACTIONS (2)
  - FATIGUE [None]
  - SOMNOLENCE [None]
